FAERS Safety Report 4769895-6 (Version None)
Quarter: 2005Q3

REPORT INFORMATION
  Report Type: 
  Country: None (occurrence: None)
  Receive Date: 20050908
  Receipt Date: 20050607
  Transmission Date: 20060218
  Serious: Yes (Other)
  Sender: FDA-Public Use
  Company Number: A03200501712

PATIENT
  Age: 71 Year
  Sex: Male
  Weight: 58.9676 kg

DRUGS (3)
  1. ELOXATIN [Suspect]
     Indication: COLON CANCER METASTATIC
     Dosage: 85 MG/M2 OTHER - INTRAVENOUS NOS
     Route: 042
     Dates: start: 20050607, end: 20050607
  2. FLUOROURACIL [Concomitant]
  3. LEUCOVORIN [Concomitant]

REACTIONS (6)
  - BRADYCARDIA [None]
  - CONVULSION [None]
  - FEELING HOT [None]
  - HYPERHIDROSIS [None]
  - HYPOTENSION [None]
  - PRURITUS [None]
